FAERS Safety Report 4621018-X (Version None)
Quarter: 2005Q1

REPORT INFORMATION
  Report Type: 
  Country: None (occurrence: None)
  Receive Date: 20050325
  Receipt Date: 20050316
  Transmission Date: 20050727
  Serious: Yes (Life-Threatening, Other)
  Sender: FDA-Public Use
  Company Number: GXKR2005JP00800

PATIENT
  Age: 69 Year
  Sex: Male

DRUGS (4)
  1. RIMACTANE [Suspect]
     Indication: MYCOBACTERIA BLOOD TEST POSITIVE
     Dosage: ORAL
     Route: 048
     Dates: start: 20040715, end: 20040906
  2. ISONIAZID [Suspect]
     Indication: MYCOBACTERIA BLOOD TEST POSITIVE
     Dates: start: 20040715, end: 20040722
  3. PYRAZINAMIDE (NGX)(PYRAZINAMIDE) UNKNOWN [Suspect]
     Indication: MYCOBACTERIA BLOOD TEST POSITIVE
     Dates: start: 20040722, end: 20040906
  4. ESANBUTOL(ETHAMBUTOL) [Suspect]
     Indication: MYCOBACTERIA BLOOD TEST POSITIVE
     Dates: start: 20040729, end: 20040906

REACTIONS (2)
  - LIVER DISORDER [None]
  - STEVENS-JOHNSON SYNDROME [None]
